FAERS Safety Report 21756283 (Version 1)
Quarter: 2022Q4

REPORT INFORMATION
  Report Type: Spontaneous
  Country: AU (occurrence: AU)
  Receive Date: 20221220
  Receipt Date: 20221220
  Transmission Date: 20230113
  Serious: No
  Sender: FDA-Public Use
  Company Number: AU-JAZZ-2022-AU-028962

PATIENT

DRUGS (1)
  1. ZEPZELCA [Suspect]
     Active Substance: LURBINECTEDIN
     Indication: Mesothelioma
     Dosage: UNK
     Route: 042

REACTIONS (1)
  - Off label use [Unknown]
